FAERS Safety Report 14494752 (Version 1)
Quarter: 2018Q1

REPORT INFORMATION
  Report Type: Report from Study
  Country: FR (occurrence: FR)
  Receive Date: 20180206
  Receipt Date: 20180206
  Transmission Date: 20180509
  Serious: Yes (Hospitalization)
  Sender: FDA-Public Use
  Company Number: FR-PFIZER INC-2018047056

PATIENT
  Age: 70 Year
  Sex: Male

DRUGS (10)
  1. LIORESAL [Suspect]
     Active Substance: BACLOFEN
     Dosage: 5 MG, 3X/DAY
     Route: 048
     Dates: start: 20171215, end: 20171218
  2. POLARAMINE [Concomitant]
     Active Substance: DEXCHLORPHENIRAMINE MALEATE
     Dosage: 6 MG, 1X/DAY (2 MG, TID)
     Route: 048
     Dates: start: 20171204
  3. AUGMENTIN [Concomitant]
     Active Substance: AMOXICILLIN\CLAVULANATE POTASSIUM
     Dosage: UNK
     Route: 065
     Dates: start: 201710, end: 20171107
  4. LIORESAL [Suspect]
     Active Substance: BACLOFEN
     Indication: MUSCLE SPASTICITY
     Dosage: UNK
     Route: 065
  5. LYRICA [Suspect]
     Active Substance: PREGABALIN
     Dosage: UNK
     Route: 065
  6. CETIRIZINE [Concomitant]
     Active Substance: CETIRIZINE HYDROCHLORIDE
     Dosage: 1, 1X/DAY
     Route: 048
     Dates: start: 20171204
  7. ATARAX [Concomitant]
     Active Substance: HYDROXYZINE HYDROCHLORIDE
     Indication: PRURITUS
     Dosage: 1 DF, EVERY 6 HOURS
     Route: 048
     Dates: start: 20180104
  8. MIANSERINE [Concomitant]
     Active Substance: MIANSERIN HYDROCHLORIDE
     Dosage: 1, 1X/DAY
     Route: 048
     Dates: start: 20171204
  9. ATARAX [Concomitant]
     Active Substance: HYDROXYZINE HYDROCHLORIDE
     Indication: INSOMNIA
  10. LOVENOX [Concomitant]
     Active Substance: ENOXAPARIN SODIUM
     Dosage: 0.4 ML, QD
     Route: 058
     Dates: start: 20180104

REACTIONS (5)
  - Eosinophilia [Recovering/Resolving]
  - Blister [Recovered/Resolved]
  - Dermatitis exfoliative generalised [Recovering/Resolving]
  - Toxic skin eruption [Recovering/Resolving]
  - Rash pustular [Recovered/Resolved]

NARRATIVE: CASE EVENT DATE: 20170919
